FAERS Safety Report 8925703 (Version 4)
Quarter: 2014Q3

REPORT INFORMATION
  Report Type: Spontaneous
  Country: US (occurrence: US)
  Receive Date: 20121126
  Receipt Date: 20140827
  Transmission Date: 20150326
  Serious: Yes (Other)
  Sender: FDA-Public Use
  Company Number: US-009507513-1211USA010222

PATIENT
  Sex: Female
  Weight: 98.41 kg

DRUGS (1)
  1. NUVARING [Suspect]
     Active Substance: ETHINYL ESTRADIOL\ETONOGESTREL
     Indication: CONTRACEPTION
     Dosage: 0.12MG-0.015MG/24HR
     Route: 067
     Dates: start: 20070723, end: 200805

REACTIONS (10)
  - Herpes simplex [Unknown]
  - Thrombosis [Unknown]
  - Headache [Unknown]
  - Inappropriate schedule of drug administration [Unknown]
  - Post lumbar puncture syndrome [Unknown]
  - Migraine [Unknown]
  - Unintended pregnancy [Recovered/Resolved]
  - Abortion induced [Recovered/Resolved]
  - Intracranial venous sinus thrombosis [Not Recovered/Not Resolved]
  - Benign intracranial hypertension [Unknown]

NARRATIVE: CASE EVENT DATE: 2008
